FAERS Safety Report 9781342 (Version 1)
Quarter: 2013Q4

REPORT INFORMATION
  Report Type: Spontaneous
  Country: FR (occurrence: FR)
  Receive Date: 20131224
  Receipt Date: 20131224
  Transmission Date: 20140711
  Serious: Yes (Hospitalization)
  Sender: FDA-Public Use
  Company Number: FR-ASTRAZENECA-2013SE92488

PATIENT
  Age: 23710 Day
  Sex: Female

DRUGS (14)
  1. EMLA PATCH [Suspect]
     Route: 062
     Dates: start: 20130930, end: 20130930
  2. HEPARINE SODIQUE PANPHARMA [Suspect]
     Indication: ARTERIOGRAM CORONARY
     Dosage: 3000 IU QD, INTRARADIAL
     Dates: start: 20130930, end: 20130930
  3. TILDIEM [Suspect]
     Indication: ARTERIOGRAM CORONARY
     Dosage: 5 MG QD, INTRARADIAL
     Dates: start: 20130930, end: 20130930
  4. VISIPAQUE [Concomitant]
     Indication: ARTERIOGRAM CORONARY
     Route: 016
     Dates: start: 20130930, end: 20130930
  5. RILMENIDINE [Concomitant]
     Indication: HYPERTENSION
  6. LASILIX FAIBLE [Concomitant]
     Indication: HYPERTENSION
  7. KARDEGIC [Concomitant]
     Dates: start: 20130929, end: 20130930
  8. KALINOX [Concomitant]
     Route: 055
     Dates: start: 20130930, end: 20130930
  9. RISORDAN [Concomitant]
     Indication: ARTERIOGRAM CORONARY
     Route: 016
     Dates: start: 20130930, end: 20130930
  10. PLAVIX [Concomitant]
     Route: 048
     Dates: start: 20130929, end: 20130929
  11. ALPRAZOLAM MYLAN [Concomitant]
     Route: 048
     Dates: start: 20130930, end: 20130930
  12. BETADINE SCRUB [Concomitant]
     Indication: SKIN INFECTION
     Route: 003
     Dates: start: 20130929, end: 20130930
  13. NATISPRAY [Concomitant]
     Indication: PAIN
  14. EFFERALGAN [Concomitant]

REACTIONS (3)
  - Erythema [Recovered/Resolved]
  - Blister [Recovered/Resolved]
  - Injection site reaction [Recovered/Resolved]
